FAERS Safety Report 23877551 (Version 1)
Quarter: 2024Q2

REPORT INFORMATION
  Report Type: Spontaneous
  Country: US (occurrence: US)
  Receive Date: 20240521
  Receipt Date: 20240521
  Transmission Date: 20240716
  Serious: No
  Sender: FDA-Public Use
  Company Number: US-CIPLA LTD.-2024US01211

PATIENT

DRUGS (2)
  1. ALBUTEROL [Suspect]
     Active Substance: ALBUTEROL
     Indication: Wheezing
     Dosage: 180 MCG, 2 PUFFS EVERY 6 HOURS BY MOUTH
     Route: 048
     Dates: start: 202401
  2. ALBUTEROL [Suspect]
     Active Substance: ALBUTEROL
     Indication: Cough

REACTIONS (3)
  - Respiratory tract infection [Unknown]
  - Device delivery system issue [Unknown]
  - Device malfunction [Unknown]

NARRATIVE: CASE EVENT DATE: 20240101
